FAERS Safety Report 8851415 (Version 3)
Quarter: 2013Q1

REPORT INFORMATION
  Report Type: Spontaneous
  Country: US (occurrence: US)
  Receive Date: 20121021
  Receipt Date: 20130218
  Transmission Date: 20140127
  Serious: No
  Sender: FDA-Public Use
  Company Number: US-009507513-1210USA003496

PATIENT
  Age: 30 Year
  Sex: Female
  Weight: 58.5 kg

DRUGS (2)
  1. IMPLANON [Suspect]
     Indication: CONTRACEPTION
     Dosage: 1 ROD UP TO 3 YEARS
     Route: 059
     Dates: start: 20110709
  2. TYLENOL [Concomitant]
     Dosage: UNK, PRN

REACTIONS (1)
  - Metrorrhagia [Unknown]
